FAERS Safety Report 6217564-8 (Version None)
Quarter: 2009Q2

REPORT INFORMATION
  Report Type: 
  Country: None (occurrence: None)
  Receive Date: 20090608
  Receipt Date: 20090224
  Transmission Date: 20091009
  Serious: No
  Sender: FDA-Public Use
  Company Number: A0770211A

PATIENT
  Sex: Female

DRUGS (3)
  1. WELLBUTRIN XL [Suspect]
     Route: 048
     Dates: start: 20090217
  2. ALCOHOL [Suspect]
  3. UNKNOWN [Concomitant]

REACTIONS (4)
  - CHEST DISCOMFORT [None]
  - DIARRHOEA [None]
  - EUPHORIC MOOD [None]
  - MEDICATION RESIDUE [None]
